FAERS Safety Report 7582202-9 (Version None)
Quarter: 2011Q2

REPORT INFORMATION
  Report Type: 
  Country: None (occurrence: None)
  Receive Date: 20110622
  Receipt Date: 20110609
  Transmission Date: 20111010
  Serious: Yes (Hospitalization)
  Sender: FDA-Public Use
  Company Number: 1000021661

PATIENT
  Age: 84 Year
  Sex: Male
  Weight: 79 kg

DRUGS (1)
  1. ROFLUMILAST (ROFLUMILAST) (TABLETS) [Suspect]
     Dosage: 500 MCG, ORAL; 500 MG, ORAL
     Route: 048

REACTIONS (5)
  - CHRONIC OBSTRUCTIVE PULMONARY DISEASE [None]
  - DYSPNOEA [None]
  - NAUSEA [None]
  - CONDITION AGGRAVATED [None]
  - GENERAL PHYSICAL HEALTH DETERIORATION [None]
